FAERS Safety Report 8996143 (Version 1)
Quarter: 2013Q1

REPORT INFORMATION
  Report Type: Spontaneous
  Country: US (occurrence: US)
  Receive Date: 20130103
  Receipt Date: 20130103
  Transmission Date: 20140127
  Serious: Yes (Other)
  Sender: FDA-Public Use
  Company Number: US-WATSON-2012-22998

PATIENT
  Sex: Female

DRUGS (1)
  1. ESTRADIOL (WATSON LABORATORIES) [Suspect]
     Indication: HORMONE REPLACEMENT THERAPY
     Dosage: IN A REASONABLY FORESEEABLE MANNER
     Route: 048

REACTIONS (1)
  - Injury [Unknown]
